FAERS Safety Report 25649308 (Version 1)
Quarter: 2025Q3

REPORT INFORMATION
  Report Type: Spontaneous
  Country: US (occurrence: US)
  Receive Date: 20250806
  Receipt Date: 20250806
  Transmission Date: 20251020
  Serious: Yes (Other)
  Sender: AMGEN
  Company Number: US-AMGEN-USASP2025151789

PATIENT
  Sex: Male

DRUGS (3)
  1. KRYSTEXXA [Suspect]
     Active Substance: PEGLOTICASE
     Indication: Product used for unknown indication
     Route: 040
     Dates: start: 20250328
  2. KRYSTEXXA [Suspect]
     Active Substance: PEGLOTICASE
     Route: 040
     Dates: start: 20250411
  3. KRYSTEXXA [Suspect]
     Active Substance: PEGLOTICASE
     Route: 040
     Dates: start: 20250425

REACTIONS (1)
  - Supraventricular tachycardia [Not Recovered/Not Resolved]

NARRATIVE: CASE EVENT DATE: 20250101
